FAERS Safety Report 24785038 (Version 1)
Quarter: 2024Q4

REPORT INFORMATION
  Report Type: Spontaneous
  Country: US (occurrence: US)
  Receive Date: 20241228
  Receipt Date: 20241228
  Transmission Date: 20250115
  Serious: Yes (Other)
  Sender: TEVA
  Company Number: US-TEVA-VS-3279063

PATIENT
  Age: 63 Year
  Sex: Female

DRUGS (2)
  1. PRAVASTATIN [Suspect]
     Active Substance: PRAVASTATIN
     Indication: Blood cholesterol
     Route: 065
  2. KEVZARA [Suspect]
     Active Substance: SARILUMAB
     Indication: Rheumatoid arthritis
     Dosage: FORM STRENGTH: 200 MG/1.14 ML
     Route: 058
     Dates: start: 202304

REACTIONS (6)
  - Rheumatoid arthritis [Unknown]
  - Limb discomfort [Unknown]
  - Joint swelling [Unknown]
  - Arthralgia [Unknown]
  - Feeling abnormal [Unknown]
  - Osteoarthritis [Unknown]

NARRATIVE: CASE EVENT DATE: 20230701
